FAERS Safety Report 15884367 (Version 1)
Quarter: 2019Q1

REPORT INFORMATION
  Report Type: Spontaneous
  Country: US (occurrence: US)
  Receive Date: 20190129
  Receipt Date: 20190129
  Transmission Date: 20190417
  Serious: No
  Sender: FDA-Public Use
  Company Number: US-PFIZER INC-2019033827

PATIENT
  Age: 44 Year
  Sex: Female
  Weight: 104 kg

DRUGS (3)
  1. REMODULIN [Concomitant]
     Active Substance: TREPROSTINIL
     Indication: PULMONARY ARTERIAL HYPERTENSION
     Dosage: UNK, 66 NG/KG/MIN
     Route: 058
     Dates: start: 20180201
  2. OPSUMIT [Concomitant]
     Active Substance: MACITENTAN
  3. SILDENAFIL CITRATE. [Suspect]
     Active Substance: SILDENAFIL CITRATE

REACTIONS (2)
  - Dyspnoea [Unknown]
  - Cyanosis [Unknown]
